FAERS Safety Report 5407210-5 (Version None)
Quarter: 2007Q3

REPORT INFORMATION
  Report Type: 
  Country: None (occurrence: None)
  Receive Date: 20070807
  Receipt Date: 20070731
  Transmission Date: 20080115
  Serious: Yes (Hospitalization)
  Sender: FDA-Public Use
  Company Number: A0667364A

PATIENT
  Age: 58 Year
  Sex: Female

DRUGS (20)
  1. AVANDIA [Suspect]
     Dosage: 4MG TWICE PER DAY
     Route: 048
     Dates: start: 19970201
  2. PLAVIX [Concomitant]
  3. METFORMIN HYDROCHLORIDE [Concomitant]
  4. TRICOR [Concomitant]
  5. POTASSIUM CHLORIDE [Concomitant]
  6. GLUCOPHAGE [Concomitant]
  7. CLARINEX [Concomitant]
  8. ECOTRIN [Concomitant]
  9. ALBUTEROL [Concomitant]
  10. METOPROLOL SUCCINATE [Concomitant]
  11. CAPTOPRIL [Concomitant]
  12. THEOPHYLLINE [Concomitant]
  13. MOBIC [Concomitant]
  14. OCUVITE [Concomitant]
  15. SENOKOT [Concomitant]
  16. IMDUR [Concomitant]
  17. OSCAL [Concomitant]
  18. BUSPAR [Concomitant]
  19. PREVACID [Concomitant]
  20. ZANAFLEX [Concomitant]

REACTIONS (1)
  - MYOCARDIAL INFARCTION [None]
